FAERS Safety Report 19707492 (Version 3)
Quarter: 2022Q1

REPORT INFORMATION
  Report Type: Spontaneous
  Country: FR (occurrence: FR)
  Receive Date: 20210817
  Receipt Date: 20220310
  Transmission Date: 20220423
  Serious: Yes (Hospitalization, Other)
  Sender: FDA-Public Use
  Company Number: FR-CELGENE-FRA-20210802901

PATIENT
  Age: 60 Year
  Sex: Male

DRUGS (28)
  1. ABRAXANE [Suspect]
     Active Substance: PACLITAXEL
     Indication: Ductal adenocarcinoma of pancreas
     Route: 041
     Dates: start: 20200122, end: 20200129
  2. ABRAXANE [Suspect]
     Active Substance: PACLITAXEL
     Route: 041
     Dates: start: 20200119
  3. GEMCITABINE [Suspect]
     Active Substance: GEMCITABINE
     Indication: Ductal adenocarcinoma of pancreas
     Route: 041
     Dates: start: 20200122, end: 20200129
  4. GEMCITABINE [Suspect]
     Active Substance: GEMCITABINE
     Route: 041
  5. GEMCITABINE [Suspect]
     Active Substance: GEMCITABINE
     Route: 041
     Dates: start: 20200219
  6. ASPARAGINASE [Suspect]
     Active Substance: ASPARAGINASE
     Indication: Ductal adenocarcinoma of pancreas
     Route: 041
     Dates: start: 20200122, end: 20200122
  7. CREON [Concomitant]
     Active Substance: PANCRELIPASE AMYLASE\PANCRELIPASE LIPASE\PANCRELIPASE PROTEASE
     Indication: Pancreatic failure
     Dosage: 150000 IU (INTERNATIONAL UNIT)
     Route: 065
     Dates: start: 20191105, end: 20200204
  8. CREON [Concomitant]
     Active Substance: PANCRELIPASE AMYLASE\PANCRELIPASE LIPASE\PANCRELIPASE PROTEASE
     Dosage: 9 DOSAGE FORMS
     Route: 048
  9. DOLIPRANE [Concomitant]
     Active Substance: ACETAMINOPHEN
     Indication: Pain
     Dosage: 4 MILLIGRAM
     Route: 065
     Dates: start: 20200114
  10. SODIUM BICARBONATE [Concomitant]
     Active Substance: SODIUM BICARBONATE
     Indication: Gastrooesophageal reflux disease
     Dosage: 3-6
     Route: 065
     Dates: start: 20200114
  11. PHLOROGLUCINOL [Concomitant]
     Active Substance: PHLOROGLUCINOL
     Indication: Pain
     Dosage: 240 MILLIGRAM
     Route: 048
     Dates: start: 20200114
  12. PHLOROGLUCINOL [Concomitant]
     Active Substance: PHLOROGLUCINOL
     Dosage: 480 MILLIGRAM
     Route: 048
     Dates: start: 20200204
  13. SPAGULAX [Concomitant]
     Active Substance: HERBALS\PLANTAGO OVATA SEED
     Indication: Product used for unknown indication
     Route: 065
     Dates: start: 20191022, end: 20200204
  14. POLYETHYLENE GLYCOLS [Concomitant]
     Active Substance: POLYETHYLENE GLYCOLS
     Indication: Product used for unknown indication
     Dosage: 22 DOSAGE FORMS
     Route: 065
     Dates: start: 20191022, end: 20200204
  15. BEPANTHEN [Concomitant]
     Indication: Product used for unknown indication
     Dosage: 1 DOSAGE FORMS
     Route: 065
     Dates: start: 20191022, end: 20200204
  16. IMODIUM [Concomitant]
     Active Substance: LOPERAMIDE HYDROCHLORIDE
     Indication: Product used for unknown indication
     Route: 048
     Dates: start: 20200114, end: 20200204
  17. PRIMPERAN [Concomitant]
     Active Substance: METOCLOPRAMIDE HYDROCHLORIDE
     Indication: Product used for unknown indication
     Dosage: 30 MILLIGRAM
     Route: 065
     Dates: start: 20200114, end: 20200204
  18. EMLA [Concomitant]
     Active Substance: LIDOCAINE\PRILOCAINE
     Indication: Product used for unknown indication
     Route: 065
     Dates: start: 20200114, end: 20200204
  19. EMEND [Concomitant]
     Active Substance: APREPITANT
     Indication: Product used for unknown indication
     Route: 065
     Dates: start: 20200114, end: 20200204
  20. GAVISCON [Concomitant]
     Active Substance: ALUMINUM HYDROXIDE\MAGNESIUM CARBONATE
     Indication: Gastrooesophageal reflux disease
     Route: 065
  21. ACUPAN [Concomitant]
     Active Substance: NEFOPAM HYDROCHLORIDE
     Indication: Pain
     Dosage: 80 MILLIGRAM
     Route: 065
  22. DAFALGAN [Concomitant]
     Active Substance: ACETAMINOPHEN
     Indication: Pain
     Dosage: 400 MILLIGRAM
     Route: 065
  23. SODIUM CHLORIDE [Concomitant]
     Active Substance: SODIUM CHLORIDE
     Indication: Product used for unknown indication
     Route: 041
  24. LANSOPRAZOLE [Concomitant]
     Active Substance: LANSOPRAZOLE
     Indication: Gastrooesophageal reflux disease
     Route: 065
  25. VASELINE PURE [Concomitant]
     Active Substance: PETROLATUM
     Indication: Anal fissure
     Route: 065
  26. PANTHENOL [Concomitant]
     Active Substance: PANTHENOL
     Indication: Product used for unknown indication
     Dosage: 1 DOSAGE FORMS
     Route: 065
     Dates: start: 20191022, end: 20200204
  27. OLIMEL [Concomitant]
     Active Substance: AMINO ACIDS\DEXTROSE\SOYBEAN OIL
     Indication: Product used for unknown indication
     Route: 065
  28. IRON\MINERALS\POTASSIUM IOD\SODIUM FLUORIDE\SODIUM MOLYBDATE\SODIUM SE [Concomitant]
     Active Substance: IRON\MINERALS\POTASSIUM IOD\SODIUM FLUORIDE\SODIUM MOLYBDATE\SODIUM SELENITE\ZINC
     Indication: Product used for unknown indication
     Route: 065
     Dates: start: 20200206

REACTIONS (2)
  - Bicytopenia [Recovered/Resolved]
  - Stomatitis [Recovered/Resolved]

NARRATIVE: CASE EVENT DATE: 20200129
